FAERS Safety Report 10639906 (Version 5)
Quarter: 2015Q1

REPORT INFORMATION
  Report Type: Report from Study
  Country: JP (occurrence: JP)
  Receive Date: 20141209
  Receipt Date: 20150225
  Transmission Date: 20150720
  Serious: Yes (Hospitalization, Other)
  Sender: FDA-Public Use
  Company Number: JP-ABBVIE-14K-087-1316723-00

PATIENT
  Age: 56 Year
  Sex: Male
  Weight: 67 kg

DRUGS (10)
  1. HUMIRA [Suspect]
     Active Substance: ADALIMUMAB
     Route: 058
  2. METOLATE [Suspect]
     Active Substance: METHOTREXATE
     Indication: RHEUMATOID ARTHRITIS
     Dosage: 16/WEEK
     Route: 048
     Dates: start: 201303, end: 2014
  3. CELECOX [Concomitant]
     Active Substance: CELECOXIB
     Indication: PRODUCT USED FOR UNKNOWN INDICATION
  4. AMOXICILLIN HYDRATE/POTASSIUM CLAVULANATE [Concomitant]
     Indication: PRODUCT USED FOR UNKNOWN INDICATION
     Dosage: 125 SS, DOSES AFTER MEALS (MORNING, NOON, AND EVENING)
     Dates: start: 20141204
  5. PROGRAF [Suspect]
     Active Substance: TACROLIMUS\TACROLIMUS ANHYDROUS
     Indication: RHEUMATOID ARTHRITIS
     Route: 048
     Dates: start: 20141024, end: 20141104
  6. RABEPRAZOLE SODIUM. [Concomitant]
     Active Substance: RABEPRAZOLE SODIUM
     Indication: PRODUCT USED FOR UNKNOWN INDICATION
     Dosage: AFTER MEAL (MORNING)
     Dates: start: 20141204
  7. METOLATE [Suspect]
     Active Substance: METHOTREXATE
     Dosage: 12/WEEK
     Route: 048
     Dates: start: 2014, end: 20141024
  8. CELECOXIB. [Concomitant]
     Active Substance: CELECOXIB
     Indication: PRODUCT USED FOR UNKNOWN INDICATION
     Dosage: TWO DIVIDED DOSES AFTER MEALS (MORNING AND EVENING)
     Dates: start: 20141204
  9. HUMIRA [Suspect]
     Active Substance: ADALIMUMAB
     Indication: RHEUMATOID ARTHRITIS
     Route: 058
     Dates: start: 20131009, end: 20141104
  10. KETOPROFEN. [Concomitant]
     Active Substance: KETOPROFEN
     Indication: PRODUCT USED FOR UNKNOWN INDICATION
     Dosage: TAPE L, TWO PACKS, ONCE DAILY
     Dates: start: 20141204

REACTIONS (21)
  - Pleural calcification [Unknown]
  - Hypoxia [Unknown]
  - Interstitial lung disease [Not Recovered/Not Resolved]
  - Synovitis [Unknown]
  - Painful respiration [Unknown]
  - Gastritis [Recovered/Resolved]
  - Lung infiltration [Unknown]
  - Inflammation [Unknown]
  - Bone erosion [Unknown]
  - Pleurisy [Recovered/Resolved]
  - Polyarthritis [Unknown]
  - Asbestosis [Unknown]
  - Arthropathy [Unknown]
  - C-reactive protein increased [Recovering/Resolving]
  - Pleural effusion [Unknown]
  - Eosinophil count increased [Recovering/Resolving]
  - Pleurisy [Unknown]
  - Pleural fibrosis [Unknown]
  - Cellulitis [Recovered/Resolved]
  - Rheumatoid arthritis [Recovered/Resolved]
  - Rales [Unknown]

NARRATIVE: CASE EVENT DATE: 2014
